FAERS Safety Report 14166050 (Version 1)
Quarter: 2017Q4

REPORT INFORMATION
  Report Type: Spontaneous
  Country: US (occurrence: None)
  Receive Date: 20171106
  Receipt Date: 20171106
  Transmission Date: 20180321
  Serious: No
  Sender: FDA-Public Use
  Company Number: None

PATIENT
  Age: 66 Year
  Sex: Female

DRUGS (1)
  1. IBRANCE [Suspect]
     Active Substance: PALBOCICLIB
     Indication: BREAST CANCER FEMALE
     Dosage: 100 MG TAKE 1 CAP ONCE DAILY FOR 21 DAYS THEN TAKE 7 DAYS ORAL
     Route: 048
     Dates: start: 20160824, end: 20171026

REACTIONS (2)
  - White blood cell count abnormal [None]
  - Therapy cessation [None]

NARRATIVE: CASE EVENT DATE: 20171027
